FAERS Safety Report 6963816-3 (Version None)
Quarter: 2010Q3

REPORT INFORMATION
  Report Type: 
  Country: None (occurrence: None)
  Receive Date: 20100830
  Receipt Date: 20100824
  Transmission Date: 20110219
  Serious: Yes (Death, Other)
  Sender: FDA-Public Use
  Company Number: 2010JP005033

PATIENT
  Age: 35 Year
  Sex: Female

DRUGS (2)
  1. PROGRAF [Suspect]
     Indication: BONE MARROW TRANSPLANT
     Dosage: 10 MG, /D, ORAL
     Route: 048
  2. PREDNISOLONE [Concomitant]

REACTIONS (15)
  - ABDOMINAL ABSCESS [None]
  - ASPERGILLOSIS [None]
  - BACTERIAL INFECTION [None]
  - CEREBRAL VENOUS THROMBOSIS [None]
  - EMBOLISM ARTERIAL [None]
  - FALL [None]
  - HAEMORRHAGIC CEREBRAL INFARCTION [None]
  - HEAD INJURY [None]
  - LIVER ABSCESS [None]
  - LOSS OF CONSCIOUSNESS [None]
  - PNEUMONIA [None]
  - SPLENIC ABSCESS [None]
  - SUBARACHNOID HAEMORRHAGE [None]
  - VENOUS OCCLUSION [None]
  - ZYGOMYCOSIS [None]
